FAERS Safety Report 5374005-0 (Version None)
Quarter: 2007Q2

REPORT INFORMATION
  Report Type: 
  Country: None (occurrence: None)
  Receive Date: 20070628
  Receipt Date: 20070620
  Transmission Date: 20071010
  Serious: Yes (Hospitalization)
  Sender: FDA-Public Use
  Company Number: JP-MERCK-0706USA04288

PATIENT
  Age: 56 Year
  Sex: Female

DRUGS (1)
  1. DECADRON [Suspect]
     Indication: ADDISON'S DISEASE
     Route: 065

REACTIONS (1)
  - HYPERKALAEMIA [None]
